FAERS Safety Report 13211204 (Version 1)
Quarter: 2017Q1

REPORT INFORMATION
  Report Type: Spontaneous
  Country: US (occurrence: US)
  Receive Date: 20170209
  Receipt Date: 20170209
  Transmission Date: 20170428
  Serious: No
  Sender: FDA-Public Use
  Company Number: US-ALLERGAN-1661307US

PATIENT
  Sex: Female

DRUGS (2)
  1. BOTOX COSMETIC [Suspect]
     Active Substance: ONABOTULINUMTOXINA
     Indication: SKIN WRINKLING
     Dosage: 8 UNITS, SINGLE
     Route: 030
     Dates: start: 20150227, end: 20150227
  2. XANAX [Concomitant]
     Active Substance: ALPRAZOLAM
     Indication: TEMPOROMANDIBULAR JOINT SYNDROME
     Dosage: .25 MG, QPM

REACTIONS (2)
  - Off label use [Unknown]
  - Facial paresis [Unknown]
